FAERS Safety Report 19756137 (Version 1)
Quarter: 2021Q3

REPORT INFORMATION
  Report Type: Spontaneous
  Country: JP (occurrence: JP)
  Receive Date: 20210827
  Receipt Date: 20210827
  Transmission Date: 20211014
  Serious: Yes (Death, Hospitalization, Other)
  Sender: FDA-Public Use
  Company Number: JP-009507513-2107JPN001291J

PATIENT
  Age: 73 Year
  Sex: Male

DRUGS (5)
  1. METHOTREXATE. [Concomitant]
     Active Substance: METHOTREXATE
     Indication: RHEUMATOID ARTHRITIS
     Dosage: 8 MILLIGRAM, QW
     Route: 048
     Dates: end: 2021
  2. CARBOPLATIN. [Concomitant]
     Active Substance: CARBOPLATIN
     Indication: NON-SMALL CELL LUNG CANCER
     Dosage: UNK, Q3W
     Route: 041
     Dates: start: 20200909, end: 20201209
  3. PACLITAXEL ALBUMIN [Concomitant]
     Active Substance: PACLITAXEL
     Indication: NON-SMALL CELL LUNG CANCER
     Dosage: 100 MILLIGRAM/SQ. METER, QW
     Route: 042
     Dates: start: 20200909, end: 20201209
  4. KEYTRUDA [Suspect]
     Active Substance: PEMBROLIZUMAB
     Indication: SQUAMOUS CELL CARCINOMA OF LUNG
     Dosage: 200 MILLIGRAM, Q3W
     Route: 041
     Dates: start: 20200909
  5. KEYTRUDA [Suspect]
     Active Substance: PEMBROLIZUMAB
     Dosage: 200 MILLIGRAM, Q3W
     Route: 041
     Dates: start: 20210217, end: 20210623

REACTIONS (5)
  - Pneumonia [Recovered/Resolved]
  - Arthritis [Recovered/Resolved]
  - Immune-mediated arthritis [Recovered/Resolved]
  - Arthritis [Unknown]
  - Infection [Fatal]

NARRATIVE: CASE EVENT DATE: 202010
